FAERS Safety Report 11809658 (Version 3)
Quarter: 2015Q4

REPORT INFORMATION
  Report Type: Spontaneous
  Country: US (occurrence: US)
  Receive Date: 20151208
  Receipt Date: 20151218
  Transmission Date: 20160305
  Serious: Yes (Hospitalization, Other)
  Sender: FDA-Public Use
  Company Number: US-CELGENEUS-USA-2015120507

PATIENT
  Sex: Female

DRUGS (3)
  1. REVLIMID [Suspect]
     Active Substance: LENALIDOMIDE
     Indication: MYELODYSPLASTIC SYNDROME
     Dosage: 10 MILLIGRAM
     Route: 048
     Dates: start: 20151104, end: 20151201
  2. REVLIMID [Suspect]
     Active Substance: LENALIDOMIDE
     Indication: MITRAL VALVE DISEASE
  3. REVLIMID [Suspect]
     Active Substance: LENALIDOMIDE
     Indication: AORTIC VALVE DISEASE

REACTIONS (7)
  - Haemoglobin decreased [Unknown]
  - Dehydration [Unknown]
  - Back pain [Unknown]
  - Arthralgia [Unknown]
  - Diarrhoea [Unknown]
  - Headache [Unknown]
  - Neck pain [Unknown]

NARRATIVE: CASE EVENT DATE: 2015
